FAERS Safety Report 11237999 (Version 1)
Quarter: 2015Q3

REPORT INFORMATION
  Report Type: Spontaneous
  Country: US (occurrence: US)
  Receive Date: 20150703
  Receipt Date: 20150703
  Transmission Date: 20151125
  Serious: No
  Sender: FDA-Public Use
  Company Number: US-009507513-1506USA002831

PATIENT
  Age: 73 Year
  Sex: Female

DRUGS (6)
  1. ADVAIR HFA [Concomitant]
     Active Substance: FLUTICASONE PROPIONATE\SALMETEROL XINAFOATE
  2. SPIRIVA [Concomitant]
     Active Substance: TIOTROPIUM BROMIDE MONOHYDRATE
  3. SOTALOL. [Concomitant]
     Active Substance: SOTALOL
  4. COZAAR [Concomitant]
     Active Substance: LOSARTAN POTASSIUM
  5. DILTIAZEM HYDROCHLORIDE. [Concomitant]
     Active Substance: DILTIAZEM HYDROCHLORIDE
  6. NOXAFIL [Suspect]
     Active Substance: POSACONAZOLE
     Indication: PNEUMONIA FUNGAL
     Dosage: 100 MG/ TWICE A DAY
     Route: 048
     Dates: start: 20150511, end: 20150521

REACTIONS (6)
  - Productive cough [Recovering/Resolving]
  - Constipation [Recovering/Resolving]
  - Dyspnoea [Recovering/Resolving]
  - Nausea [Recovering/Resolving]
  - Asthenia [Recovering/Resolving]
  - Decreased appetite [Recovering/Resolving]

NARRATIVE: CASE EVENT DATE: 201505
